FAERS Safety Report 9465487 (Version 3)
Quarter: 2013Q4

REPORT INFORMATION
  Report Type: Report from Study
  Country: CA (occurrence: CA)
  Receive Date: 20130820
  Receipt Date: 20131121
  Transmission Date: 20140711
  Serious: Yes (Hospitalization, Other)
  Sender: FDA-Public Use
  Company Number: PHHY2010CA24643

PATIENT
  Age: 62 Year
  Sex: Male

DRUGS (1)
  1. SANDOSTATIN LAR [Suspect]
     Indication: METASTATIC CARCINOID TUMOUR
     Dosage: 30 MG, ONCE A MONTH
     Route: 030
     Dates: start: 20040101

REACTIONS (8)
  - Metastases to lung [Unknown]
  - Pleural effusion [Unknown]
  - Dyspnoea [Unknown]
  - Thrombophlebitis [Unknown]
  - Urinary tract infection [Unknown]
  - Blood pressure systolic increased [Unknown]
  - Heart rate increased [Unknown]
  - Back pain [Unknown]
